FAERS Safety Report 4601624-9 (Version None)
Quarter: 2005Q1

REPORT INFORMATION
  Report Type: 
  Country: None (occurrence: None)
  Receive Date: 20050131
  Receipt Date: 20041029
  Transmission Date: 20050727
  Serious: No
  Sender: FDA-Public Use
  Company Number: 200418370US

PATIENT
  Age: 20 Year
  Sex: Female

DRUGS (5)
  1. TELITHROMYCIN (KETEK) TABLETS [Suspect]
     Indication: BRONCHITIS
     Dosage: 800 MG QD PO
     Route: 048
     Dates: start: 20040930, end: 20041006
  2. TELITHROMYCIN (KETEK) TABLETS [Suspect]
     Indication: PHARYNGITIS
     Dosage: 800 MG QD PO
     Route: 048
     Dates: start: 20040930, end: 20041006
  3. TRICYCLIC ANTIDEPRESSANT [Concomitant]
  4. ETHINYL ESTRADIOL TAB [Concomitant]
  5. NORGESTIMATE (ORTHO TRI-CYCLEN) [Concomitant]

REACTIONS (1)
  - ORAL MUCOSAL ERUPTION [None]
